FAERS Safety Report 4473831-X (Version None)
Quarter: 2004Q4

REPORT INFORMATION
  Report Type: 
  Country: None (occurrence: None)
  Receive Date: 20041008
  Receipt Date: 20041008
  Transmission Date: 20050328
  Serious: Yes (Other)
  Sender: FDA-Public Use
  Company Number: None

PATIENT
  Age: 38 Year
  Sex: Female

DRUGS (1)
  1. ORTHO EVRA [Suspect]
     Dosage: TOPICAL PATCH
     Route: 061

REACTIONS (2)
  - DIZZINESS [None]
  - NAUSEA [None]
